FAERS Safety Report 12280877 (Version 3)
Quarter: 2016Q2

REPORT INFORMATION
  Report Type: Report from Study
  Country: CN (occurrence: CN)
  Receive Date: 20160419
  Receipt Date: 20160511
  Transmission Date: 20160815
  Serious: Yes (Life-Threatening, Other)
  Sender: FDA-Public Use
  Company Number: CN-ASTELLAS-2016US014750

PATIENT
  Age: 52 Year
  Sex: Male
  Weight: 51 kg

DRUGS (13)
  1. TACROLIMUS. [Suspect]
     Active Substance: TACROLIMUS
     Indication: PROPHYLAXIS AGAINST TRANSPLANT REJECTION
     Dosage: 1MG DAILY DOSE, TWICE DAILY
     Route: 048
     Dates: start: 20150830, end: 20150904
  2. TACROLIMUS. [Suspect]
     Active Substance: TACROLIMUS
     Dosage: 3 MG (DAILY DOSE), TWICE DAILY
     Route: 048
     Dates: start: 20151006
  3. MYCOPHENOLATE MOFETIL. [Suspect]
     Active Substance: MYCOPHENOLATE MOFETIL
     Dosage: 0.5 G (DAILY DOSE), TWICE DAILY
     Route: 048
     Dates: start: 20150928, end: 20151005
  4. MYCOPHENOLATE MOFETIL. [Suspect]
     Active Substance: MYCOPHENOLATE MOFETIL
     Indication: PROPHYLAXIS AGAINST TRANSPLANT REJECTION
     Dosage: 1.5G DAILY DOSE, TWICE DAILY
     Route: 050
     Dates: start: 20150826, end: 20150831
  5. PENICILLIN G SODIUM. [Concomitant]
     Active Substance: PENICILLIN G SODIUM
     Indication: BACTERIAL INFECTION
     Dosage: 7.2 MILLION IU, EVERY 8 HOURS
     Route: 042
     Dates: start: 20150826, end: 20150905
  6. TACROLIMUS. [Suspect]
     Active Substance: TACROLIMUS
     Dosage: 2 MG (DAILY DOSE), TWICE DAILY
     Route: 048
     Dates: start: 20150923, end: 20151005
  7. ALPROSTADIL. [Concomitant]
     Active Substance: ALPROSTADIL
     Indication: THROMBOLYSIS
     Dosage: 12 ML (DAILY DOSE), EVERY 8 HOURS
     Route: 042
     Dates: start: 20150826, end: 20150905
  8. ATG-FRESENIUS [Suspect]
     Active Substance: LAPINE T-LYMPHOCYTE IMMUNE GLOBULIN
     Indication: PROPHYLAXIS AGAINST TRANSPLANT REJECTION
     Route: 042
     Dates: start: 20150826, end: 20150901
  9. MYCOPHENOLATE MOFETIL. [Suspect]
     Active Substance: MYCOPHENOLATE MOFETIL
     Dosage: 1G DAILY DOSE, TWICE DAILY
     Route: 048
     Dates: start: 20151006
  10. LANSOPRAZOLE. [Concomitant]
     Active Substance: LANSOPRAZOLE
     Indication: STRESS ULCER
     Dosage: 60 MG (DAILY DOSE), EVERY 12 HOURS
     Route: 042
     Dates: start: 20150826, end: 20150905
  11. TACROLIMUS. [Suspect]
     Active Substance: TACROLIMUS
     Dosage: 2 MG (DAILY DOSE), TWICE DAILY
     Route: 048
     Dates: start: 20150905, end: 20150921
  12. TACROLIMUS. [Suspect]
     Active Substance: TACROLIMUS
     Dosage: 4 MG (DAILY DOSE), TWICE DAILY
     Route: 048
     Dates: start: 20150922, end: 20150922
  13. MYCOPHENOLATE MOFETIL. [Suspect]
     Active Substance: MYCOPHENOLATE MOFETIL
     Dosage: 1.5G DAILY DOSE, TWICE DAILY
     Route: 048
     Dates: start: 20150901, end: 20150923

REACTIONS (1)
  - Bone marrow failure [Recovering/Resolving]

NARRATIVE: CASE EVENT DATE: 20150829
